FAERS Safety Report 7514817-8 (Version None)
Quarter: 2011Q2

REPORT INFORMATION
  Report Type: 
  Country: None (occurrence: None)
  Receive Date: 20110422
  Receipt Date: 20100521
  Transmission Date: 20111010
  Serious: Yes (Hospitalization)
  Sender: FDA-Public Use
  Company Number: WAES 1005USA03972

PATIENT
  Age: 24 Month
  Sex: Female

DRUGS (1)
  1. SINGULAIR [Suspect]
     Indication: ASTHMA
     Dosage: PO
     Route: 048
     Dates: start: 20050101, end: 20080115

REACTIONS (6)
  - PRURITUS [None]
  - ADVERSE EVENT [None]
  - INSOMNIA [None]
  - MOOD ALTERED [None]
  - RESTLESSNESS [None]
  - PARAESTHESIA [None]
